FAERS Safety Report 5382261-8 (Version None)
Quarter: 2007Q3

REPORT INFORMATION
  Report Type: 
  Country: None (occurrence: None)
  Receive Date: 20070709
  Receipt Date: 20070705
  Transmission Date: 20080115
  Serious: Yes (Hospitalization, Other)
  Sender: FDA-Public Use
  Company Number: US-SANOFI-SYNTHELABO-A03200704337

PATIENT
  Sex: Male

DRUGS (12)
  1. PLAVIX [Suspect]
     Indication: STENT PLACEMENT
     Route: 048
     Dates: start: 20060101
  2. ASPIRIN [Suspect]
     Indication: DEEP VEIN THROMBOSIS
     Route: 048
     Dates: start: 20050801
  3. COUMADIN [Suspect]
     Indication: DEEP VEIN THROMBOSIS
     Dosage: UNK
     Route: 048
     Dates: start: 20050801, end: 20070201
  4. LOVENOX [Suspect]
     Indication: DEEP VEIN THROMBOSIS
     Route: 058
     Dates: start: 20070201, end: 20070501
  5. LOVENOX [Suspect]
     Route: 058
     Dates: start: 20070501
  6. RISPERDAL [Concomitant]
     Dosage: UNK
     Route: 048
  7. TOPROL-XL [Concomitant]
     Dosage: UNK
     Route: 048
  8. TOPAMAX [Concomitant]
     Dosage: UNK
     Route: 048
  9. SINGULAIR [Concomitant]
     Dosage: UNK
     Route: 048
  10. ADVAIR DISKUS 100/50 [Concomitant]
     Dosage: UNK
     Route: 048
  11. ZETIA [Concomitant]
     Dosage: UNK
     Route: 048
  12. LIPITOR [Concomitant]
     Dosage: UNK
     Route: 048

REACTIONS (5)
  - ALOPECIA [None]
  - DEEP VEIN THROMBOSIS [None]
  - HAEMORRHAGE [None]
  - INJECTION SITE BRUISING [None]
  - INJECTION SITE HAEMORRHAGE [None]
